FAERS Safety Report 20297569 (Version 1)
Quarter: 2022Q1

REPORT INFORMATION
  Report Type: Spontaneous
  Country: US (occurrence: None)
  Receive Date: 20220105
  Receipt Date: 20220105
  Transmission Date: 20220423
  Serious: No
  Sender: FDA-Public Use
  Company Number: US-ROCHE-2739420

PATIENT
  Age: 3 Year

DRUGS (1)
  1. HEMLIBRA [Suspect]
     Active Substance: EMICIZUMAB-KXWH
     Indication: Factor VIII deficiency
     Dosage: ON EMICIZUMAB FOR 6 MONTHS BEFORE AE
     Route: 065

REACTIONS (2)
  - Vascular access site swelling [Unknown]
  - Factor VIII inhibition [Unknown]
